FAERS Safety Report 8479237-0 (Version None)
Quarter: 2012Q2

REPORT INFORMATION
  Report Type: 
  Country: None (occurrence: None)
  Receive Date: 20120629
  Receipt Date: 20120620
  Transmission Date: 20120825
  Serious: Yes (Hospitalization)
  Sender: FDA-Public Use
  Company Number: US-GLAXOSMITHKLINE-A0875649A

PATIENT
  Age: 68 Year
  Sex: Female
  Weight: 97.3 kg

DRUGS (8)
  1. VYTORIN [Concomitant]
  2. GLUCOTROL [Concomitant]
  3. DIOVAN [Concomitant]
  4. AVANDIA [Suspect]
     Indication: DIABETES MELLITUS
     Dosage: 8MG PER DAY
     Route: 048
     Dates: start: 20000818, end: 20070522
  5. METFORMIN HCL [Concomitant]
  6. VALIUM [Concomitant]
  7. AXID [Concomitant]
  8. CARDIZEM [Concomitant]

REACTIONS (3)
  - ANGINA PECTORIS [None]
  - ARRHYTHMIA [None]
  - CORONARY ARTERY DISEASE [None]
